FAERS Safety Report 17663368 (Version 1)
Quarter: 2020Q2

REPORT INFORMATION
  Report Type: Report from Study
  Country: DE (occurrence: DE)
  Receive Date: 20200413
  Receipt Date: 20200413
  Transmission Date: 20200713
  Serious: Yes (Hospitalization)
  Sender: FDA-Public Use
  Company Number: DE-AMGEN-DEUCT2020061051

PATIENT
  Age: 67 Year
  Sex: Female

DRUGS (12)
  1. ERENUMAB [Suspect]
     Active Substance: ERENUMAB
     Dosage: 70 UNK
     Route: 065
     Dates: start: 20191115
  2. ERENUMAB [Suspect]
     Active Substance: ERENUMAB
     Dosage: 70 UNK
     Route: 065
     Dates: start: 20191215
  3. ERENUMAB [Suspect]
     Active Substance: ERENUMAB
     Dosage: 70 UNK  *SINGLE *SINGLE *SINGLE *SINGLE *SINGLE *SINGLE *SINGLE *SINGLE *SINGLE
     Route: 065
     Dates: start: 20200315
  4. ERENUMAB [Suspect]
     Active Substance: ERENUMAB
     Dosage: 70 UNK
     Route: 065
     Dates: start: 20191015
  5. CALCIUM [Concomitant]
     Active Substance: CALCIUM
     Indication: OSTEOPOROSIS
     Dosage: 500 MG, QD
     Route: 048
     Dates: start: 20130701
  6. ERENUMAB [Suspect]
     Active Substance: ERENUMAB
     Dosage: 70 UNK
     Route: 065
     Dates: start: 20191016
  7. ERENUMAB [Suspect]
     Active Substance: ERENUMAB
     Dosage: 70 UNK
     Route: 065
     Dates: start: 20190915
  8. ERENUMAB [Suspect]
     Active Substance: ERENUMAB
     Dosage: 70 UNK
     Route: 065
     Dates: start: 20200115
  9. DEKRISTOL [Concomitant]
     Active Substance: CHOLECALCIFEROL
     Indication: OSTEOPOROSIS
     Dosage: 1000 IU, QD
     Route: 048
     Dates: start: 20130701
  10. ERENUMAB [Suspect]
     Active Substance: ERENUMAB
     Indication: MIGRAINE
     Dosage: 70 MILLIGRAM
     Route: 065
     Dates: start: 20190815
  11. ERENUMAB [Suspect]
     Active Substance: ERENUMAB
     Dosage: 70 UNK
     Route: 065
     Dates: start: 20200215
  12. VALSARTAN. [Concomitant]
     Active Substance: VALSARTAN
     Indication: HYPERTENSION
     Dosage: 80 MG, QD
     Route: 048
     Dates: start: 20020101

REACTIONS (2)
  - Gastroenteritis [Recovered/Resolved]
  - Migraine [Recovered/Resolved]

NARRATIVE: CASE EVENT DATE: 20200225
